FAERS Safety Report 10137038 (Version 1)
Quarter: 2014Q2

REPORT INFORMATION
  Report Type: Spontaneous
  Country: US (occurrence: None)
  Receive Date: 20140425
  Receipt Date: 20140425
  Transmission Date: 20141212
  Serious: Yes (Hospitalization)
  Sender: FDA-Public Use
  Company Number: UCM201404-000052

PATIENT
  Age: 48 Year
  Sex: Male

DRUGS (3)
  1. DIVALPROEX SODIUM [Suspect]
  2. CLONAZEPAM (CLONAZEPAM) (CLONAZEPAM) [Suspect]
  3. OLANZAPINE (OLANZAPINE) [Suspect]

REACTIONS (6)
  - Neuroleptic malignant syndrome [None]
  - Bandaemia [None]
  - Thrombocytopenia [None]
  - Rhabdomyolysis [None]
  - Renal failure acute [None]
  - Myoglobinuria [None]
